FAERS Safety Report 17355262 (Version 1)
Quarter: 2020Q1

REPORT INFORMATION
  Report Type: Spontaneous
  Country: GB (occurrence: GB)
  Receive Date: 20200131
  Receipt Date: 20200131
  Transmission Date: 20200409
  Serious: Yes (Other)
  Sender: FDA-Public Use
  Company Number: GB-QUAGEN PHARMA LLC-2020QUALIT00010

PATIENT
  Age: 52 Year
  Sex: Male

DRUGS (1)
  1. PROMETHAZINE HYDROCHLORIDE TABLETS, 12.5 MG [Suspect]
     Active Substance: PROMETHAZINE HYDROCHLORIDE

REACTIONS (10)
  - Pruritus [Unknown]
  - Paraesthesia [Unknown]
  - Tremor [Unknown]
  - Erythema [Unknown]
  - Urticaria [Unknown]
  - Hypotension [Unknown]
  - Anaphylactic reaction [Unknown]
  - Paralysis [Unknown]
  - Hyperhidrosis [Unknown]
  - Flushing [Unknown]
